FAERS Safety Report 4888281-1 (Version None)
Quarter: 2006Q1

REPORT INFORMATION
  Report Type: 
  Country: None (occurrence: None)
  Receive Date: 20060123
  Receipt Date: 20060117
  Transmission Date: 20060701
  Serious: Yes (Death)
  Sender: FDA-Public Use
  Company Number: US-SANOFI-SYNTHELABO-F03200600008

PATIENT
  Age: 61 Year
  Sex: Male

DRUGS (4)
  1. OXALIPLATIN [Suspect]
     Indication: CHRONIC LYMPHOCYTIC LEUKAEMIA
     Route: 042
     Dates: start: 20051217
  2. RITUXAN [Suspect]
     Indication: CHRONIC LYMPHOCYTIC LEUKAEMIA
     Route: 042
     Dates: start: 20051216
  3. CYTARABINE [Suspect]
     Indication: CHRONIC LYMPHOCYTIC LEUKAEMIA
     Route: 042
     Dates: start: 20051216
  4. FLUDARABINE [Suspect]
     Indication: CHRONIC LYMPHOCYTIC LEUKAEMIA
     Route: 042
     Dates: start: 20051216

REACTIONS (13)
  - BRADYCARDIA [None]
  - CARDIAC ARREST [None]
  - CYTOMEGALOVIRUS ANTIGEN POSITIVE [None]
  - DYSPNOEA [None]
  - ELECTROMECHANICAL DISSOCIATION [None]
  - HYPOTENSION [None]
  - INFECTION [None]
  - LETHARGY [None]
  - LUNG CONSOLIDATION [None]
  - LUNG INFILTRATION [None]
  - MOUTH ULCERATION [None]
  - ORAL FUNGAL INFECTION [None]
  - RESPIRATORY DISORDER [None]
